FAERS Safety Report 5503070-2 (Version None)
Quarter: 2007Q4

REPORT INFORMATION
  Report Type: 
  Country: None (occurrence: None)
  Receive Date: 20071029
  Receipt Date: 20071029
  Transmission Date: 20080405
  Serious: Yes (Other)
  Sender: FDA-Public Use
  Company Number: None

PATIENT
  Age: 33 Year
  Sex: Female
  Weight: 90.9 kg

DRUGS (2)
  1. GLUCOPHAGE [Suspect]
     Indication: POLYCYSTIC OVARIES
     Dosage: 500 QHS PO
     Route: 048
     Dates: start: 20070901, end: 20070904
  2. FLINSTONE VITAMIN [Concomitant]

REACTIONS (5)
  - ANGIOPATHY [None]
  - HYPOAESTHESIA [None]
  - ILL-DEFINED DISORDER [None]
  - NERVOUS SYSTEM DISORDER [None]
  - OEDEMA PERIPHERAL [None]
